FAERS Safety Report 13551027 (Version 3)
Quarter: 2017Q2

REPORT INFORMATION
  Report Type: Spontaneous
  Country: JP (occurrence: JP)
  Receive Date: 20170516
  Receipt Date: 20170606
  Transmission Date: 20170830
  Serious: Yes (Other)
  Sender: FDA-Public Use
  Company Number: JP-PFIZER INC-2017208650

PATIENT
  Age: 72 Year
  Sex: Female

DRUGS (2)
  1. REVATIO [Suspect]
     Active Substance: SILDENAFIL CITRATE
     Indication: PULMONARY HYPERTENSION
     Dosage: 60 MG, DAILY
     Route: 048
     Dates: start: 201704
  2. VOLIBRIS [Suspect]
     Active Substance: AMBRISENTAN
     Route: 048

REACTIONS (2)
  - Blood pressure increased [Unknown]
  - Primary hyperaldosteronism [Unknown]

NARRATIVE: CASE EVENT DATE: 20170501
